FAERS Safety Report 7469067-0 (Version None)
Quarter: 2011Q2

REPORT INFORMATION
  Report Type: 
  Country: None (occurrence: None)
  Receive Date: 20110505
  Receipt Date: 20110505
  Transmission Date: 20111010
  Serious: No
  Sender: FDA-Public Use
  Company Number: None

PATIENT
  Age: 62 Year
  Sex: Female
  Weight: 58.9676 kg

DRUGS (1)
  1. MEDAVIR 30ML MEDAVIR [Suspect]
     Indication: HERPES SIMPLEX
     Dosage: APPLY 4-6 DAILY
     Dates: start: 20110205, end: 20110312

REACTIONS (1)
  - DRUG INEFFECTIVE [None]
